FAERS Safety Report 16527312 (Version 1)
Quarter: 2019Q3

REPORT INFORMATION
  Report Type: Report from Study
  Country: CL (occurrence: CL)
  Receive Date: 20190704
  Receipt Date: 20190704
  Transmission Date: 20191004
  Serious: Yes (Other)
  Sender: FDA-Public Use
  Company Number: PHHY2014CL165131

PATIENT
  Age: 39 Year
  Sex: Female

DRUGS (1)
  1. GILENYA [Suspect]
     Active Substance: FINGOLIMOD HYDROCHLORIDE
     Indication: MULTIPLE SCLEROSIS
     Dosage: 0.5 MG, QD
     Route: 048
     Dates: start: 20140710

REACTIONS (20)
  - Influenza [Recovered/Resolved]
  - Pyrexia [Recovered/Resolved]
  - Pruritus [Unknown]
  - Post herpetic neuralgia [Unknown]
  - Blister [Unknown]
  - Arthralgia [Unknown]
  - White blood cell count decreased [Unknown]
  - Vertigo [Recovered/Resolved]
  - Herpes zoster [Unknown]
  - Sleep disorder [Unknown]
  - Amenorrhoea [Unknown]
  - Insomnia [Unknown]
  - Migraine [Unknown]
  - Syncope [Recovered/Resolved]
  - Urinary tract infection [Recovered/Resolved]
  - Hypoaesthesia [Unknown]
  - Laryngitis [Recovered/Resolved]
  - Vomiting [Recovered/Resolved]
  - Anxiety [Unknown]
  - Premature menopause [Unknown]

NARRATIVE: CASE EVENT DATE: 20141203
